FAERS Safety Report 12600376 (Version 1)
Quarter: 2016Q3

REPORT INFORMATION
  Report Type: Spontaneous
  Country: AU (occurrence: AU)
  Receive Date: 20160727
  Receipt Date: 20160727
  Transmission Date: 20161109
  Serious: Yes (Other)
  Sender: FDA-Public Use
  Company Number: AU-JNJFOC-20131116375

PATIENT

DRUGS (6)
  1. AZATHIOPRINE. [Concomitant]
     Active Substance: AZATHIOPRINE
     Route: 065
  2. METHOTREXATE. [Concomitant]
     Active Substance: METHOTREXATE
     Route: 065
  3. 6-MP [Concomitant]
     Active Substance: MERCAPTOPURINE
     Route: 065
  4. INFLIXIMAB, RECOMBINANT [Suspect]
     Active Substance: INFLIXIMAB
     Indication: CROHN^S DISEASE
     Route: 042
  5. MESALAZINE [Concomitant]
     Active Substance: MESALAMINE
     Route: 065
  6. SULFASALAZINE. [Concomitant]
     Active Substance: SULFASALAZINE
     Route: 065

REACTIONS (2)
  - Lower respiratory tract infection [Unknown]
  - Type IV hypersensitivity reaction [Unknown]
